FAERS Safety Report 9693754 (Version 3)
Quarter: 2014Q1

REPORT INFORMATION
  Report Type: Report from Study
  Country: CZ (occurrence: CZ)
  Receive Date: 20131118
  Receipt Date: 20140321
  Transmission Date: 20141002
  Serious: Yes (Hospitalization)
  Sender: FDA-Public Use
  Company Number: CZ-CELGENEUS-217-C5013-13110971

PATIENT
  Age: 74 Year
  Sex: Female
  Weight: 68.2 kg

DRUGS (12)
  1. CC-5013 [Suspect]
     Indication: MANTLE CELL LYMPHOMA
     Dosage: 25 MILLIGRAM
     Route: 048
     Dates: start: 20101122, end: 20130924
  2. CC-5013 [Suspect]
     Dosage: 25 MILLIGRAM
     Route: 048
     Dates: start: 20131009, end: 20131029
  3. CC-5013 [Suspect]
     Dosage: 25 MILLIGRAM
     Route: 048
     Dates: start: 20140227
  4. NOVALGIN [Concomitant]
     Indication: PAIN
     Route: 048
     Dates: start: 20130925
  5. STILNOX [Concomitant]
     Indication: PROPHYLAXIS
     Route: 048
     Dates: start: 20130925
  6. PRADAXA [Concomitant]
     Indication: THROMBOSIS PROPHYLAXIS
     Dosage: 1 TABLET
     Route: 048
     Dates: start: 20130925
  7. IBUBROFENUM [Concomitant]
     Indication: PAIN PROPHYLAXIS
     Route: 065
     Dates: start: 20120214
  8. MAXITROL [Concomitant]
     Indication: PROPHYLAXIS
     Dosage: 3500 M.J
     Route: 065
     Dates: start: 20120605
  9. MAXITROL [Concomitant]
     Dosage: 3500 M.J
     Route: 065
     Dates: start: 20120720, end: 20120726
  10. ANOPYRIN [Concomitant]
     Indication: THROMBOSIS PROPHYLAXIS
     Route: 065
     Dates: start: 20120611
  11. GARASON [Concomitant]
     Indication: HYPERSENSITIVITY
     Dosage: 1 GUTI
     Route: 065
     Dates: start: 20120625, end: 20120708
  12. CORTICOSTEROIDS [Concomitant]
     Indication: PRODUCT USED FOR UNKNOWN INDICATION
     Route: 065

REACTIONS (1)
  - Osteonecrosis [Recovered/Resolved]
